FAERS Safety Report 20785417 (Version 1)
Quarter: 2022Q2

REPORT INFORMATION
  Report Type: Spontaneous
  Country: US (occurrence: US)
  Receive Date: 20220504
  Receipt Date: 20220504
  Transmission Date: 20220721
  Serious: Yes (Other)
  Sender: FDA-Public Use
  Company Number: US-Blueprint Medicines Corporation-SP-US-2022-001286

PATIENT
  Sex: Male

DRUGS (2)
  1. AYVAKIT [Suspect]
     Active Substance: AVAPRITINIB
     Indication: Systemic mastocytosis
     Route: 048
  2. SPIRIVA [Concomitant]
     Active Substance: TIOTROPIUM BROMIDE MONOHYDRATE
     Indication: Dyspnoea
     Route: 065

REACTIONS (6)
  - Neoplasm malignant [Unknown]
  - Weight decreased [Unknown]
  - Vomiting [Unknown]
  - Nausea [Unknown]
  - Decreased appetite [Unknown]
  - Product lot number issue [Unknown]
